FAERS Safety Report 6538710-2 (Version None)
Quarter: 2010Q1

REPORT INFORMATION
  Report Type: 
  Country: None (occurrence: None)
  Receive Date: 20100113
  Receipt Date: 20100113
  Transmission Date: 20100710
  Serious: Yes (Life-Threatening, Hospitalization)
  Sender: FDA-Public Use
  Company Number: None

PATIENT
  Age: 80 Year
  Sex: Male
  Weight: 87.59 kg

DRUGS (3)
  1. CLOPIDOGREL [Suspect]
     Indication: VASCULAR OPERATION
     Dosage: 75 MG EVERY DAY PO
     Route: 048
     Dates: start: 20090403, end: 20090903
  2. ASPIRIN [Suspect]
     Indication: CARDIOVASCULAR DISORDER
     Dosage: 81 MG EVERY DAY PO
     Route: 048
     Dates: start: 20080304, end: 20090903
  3. ASPIRIN [Suspect]
     Indication: SURGERY
     Dosage: 81 MG EVERY DAY PO
     Route: 048
     Dates: start: 20080304, end: 20090903

REACTIONS (3)
  - ABDOMINAL WALL HAEMATOMA [None]
  - HAEMORRHAGE [None]
  - HYPOTENSION [None]
